FAERS Safety Report 8851013 (Version 2)
Quarter: 2012Q4

REPORT INFORMATION
  Report Type: 
  Country: US (occurrence: US)
  Receive Date: 20121019
  Receipt Date: 20121129
  Transmission Date: 20130627
  Serious: No
  Sender: FDA-Public Use
  Company Number: US-PFIZER INC-2012260560

PATIENT
  Sex: Female

DRUGS (5)
  1. DILANTIN [Suspect]
     Indication: EPILEPSY
     Dosage: 300 mg, 1x/day
  2. TEGRETOL [Concomitant]
     Indication: SEIZURES
  3. PHENOBARBITAL [Concomitant]
     Indication: SEIZURES
  4. DIOVAN [Concomitant]
     Indication: BLOOD PRESSURE
  5. VENLAFAXINE HYDROCHLORIDE ER [Concomitant]
     Indication: DEPRESSION
     Dosage: 75 mg

REACTIONS (3)
  - Tooth loss [Unknown]
  - Tooth disorder [Unknown]
  - Overweight [Unknown]
